FAERS Safety Report 12492687 (Version 1)
Quarter: 2016Q2

REPORT INFORMATION
  Report Type: Spontaneous
  Country: BR (occurrence: BR)
  Receive Date: 20160623
  Receipt Date: 20160623
  Transmission Date: 20160815
  Serious: Yes (Hospitalization)
  Sender: FDA-Public Use
  Company Number: BR-PFIZER INC-2016284714

PATIENT
  Age: 61 Year
  Sex: Male

DRUGS (9)
  1. DIOVAN [Concomitant]
     Active Substance: VALSARTAN
     Dosage: UNK
     Dates: start: 2006
  2. DEPAKOTE [Concomitant]
     Active Substance: DIVALPROEX SODIUM
     Dosage: UNK
     Dates: start: 2013
  3. TRADJENTA [Concomitant]
     Active Substance: LINAGLIPTIN
     Dosage: UNK
     Dates: start: 2013
  4. GLIFAGE [Concomitant]
     Active Substance: METFORMIN HYDROCHLORIDE
     Dosage: UNK
     Dates: start: 2006
  5. CARVEDILOL. [Concomitant]
     Active Substance: CARVEDILOL
     Dosage: UNK
     Dates: start: 2013
  6. SEROQUEL [Concomitant]
     Active Substance: QUETIAPINE FUMARATE
     Dosage: UNK
     Dates: start: 2013
  7. FRONTAL [Suspect]
     Active Substance: ALPRAZOLAM
     Indication: DEPRESSION
     Dosage: 2 TABLETS DAILY
     Route: 048
     Dates: start: 2006
  8. CITALOR [Concomitant]
     Active Substance: ATORVASTATIN
     Dosage: UNK
     Dates: start: 2006
  9. DIAMICRON [Concomitant]
     Active Substance: GLICLAZIDE
     Dosage: UNK
     Dates: start: 2006

REACTIONS (6)
  - Communication disorder [Recovered/Resolved]
  - Product use issue [Unknown]
  - Gait disturbance [Not Recovered/Not Resolved]
  - Diabetes mellitus [Recovered/Resolved]
  - Condition aggravated [Recovered/Resolved]
  - Malaise [Not Recovered/Not Resolved]

NARRATIVE: CASE EVENT DATE: 2006
